FAERS Safety Report 16391482 (Version 1)
Quarter: 2019Q2

REPORT INFORMATION
  Report Type: Spontaneous
  Country: JP (occurrence: JP)
  Receive Date: 20190605
  Receipt Date: 20190605
  Transmission Date: 20190711
  Serious: Yes (Hospitalization)
  Sender: FDA-Public Use
  Company Number: JP-AMGEN-JPNSP2019088323

PATIENT
  Age: 77 Year
  Sex: Male

DRUGS (2)
  1. PRALIA [Suspect]
     Active Substance: DENOSUMAB
     Indication: OSTEOPOROSIS
     Dosage: UNK
     Route: 065
     Dates: start: 20190422
  2. DENOTAS [Concomitant]
     Active Substance: CALCIUM CARBONATE\CHOLECALCIFEROL\MAGNESIUM CARBONATE
     Dosage: 2TABLETS/DAY
     Route: 048

REACTIONS (4)
  - Blood phosphorus decreased [Not Recovered/Not Resolved]
  - Fracture [Not Recovered/Not Resolved]
  - Pain [Not Recovered/Not Resolved]
  - Hypocalcaemia [Not Recovered/Not Resolved]
